FAERS Safety Report 11990013 (Version 2)
Quarter: 2016Q1

REPORT INFORMATION
  Report Type: Spontaneous
  Country: US (occurrence: US)
  Receive Date: 20160202
  Receipt Date: 20160211
  Transmission Date: 20160526
  Serious: No
  Sender: FDA-Public Use
  Company Number: US-PFIZER INC-2016020446

PATIENT
  Age: 66 Year
  Sex: Male
  Weight: 109 kg

DRUGS (2)
  1. ZITHROMAX [Suspect]
     Active Substance: AZITHROMYCIN DIHYDRATE
     Indication: BRONCHITIS
     Dosage: 250 MG, 2X/DAY ORALLY
     Route: 048
     Dates: start: 20150703, end: 201507
  2. TYLENOL [Concomitant]
     Active Substance: ACETAMINOPHEN
     Indication: BACK PAIN
     Dosage: WEEKLY; 500MG, ONE TO TWO TABLETS A WEEK

REACTIONS (9)
  - Skin lesion [Recovered/Resolved with Sequelae]
  - Rash erythematous [Recovered/Resolved with Sequelae]
  - Skin exfoliation [Recovered/Resolved with Sequelae]
  - Eye disorder [Recovered/Resolved with Sequelae]
  - Blister [Recovered/Resolved with Sequelae]
  - Self esteem decreased [Not Recovered/Not Resolved]
  - Oral mucosal blistering [Recovered/Resolved with Sequelae]
  - Gingival blister [Recovered/Resolved with Sequelae]
  - Scar [Not Recovered/Not Resolved]

NARRATIVE: CASE EVENT DATE: 201507
